FAERS Safety Report 5324293-1 (Version None)
Quarter: 2007Q2

REPORT INFORMATION
  Report Type: 
  Country: None (occurrence: None)
  Receive Date: 20070514
  Receipt Date: 20070509
  Transmission Date: 20071010
  Serious: Yes (Death)
  Sender: FDA-Public Use
  Company Number: SE-ROXANE LABORATORIES, INC-2007-DE-02822GD

PATIENT
  Age: 79 Year
  Sex: Female

DRUGS (2)
  1. SERTRALINE [Suspect]
  2. WARFARIN SODIUM [Suspect]

REACTIONS (2)
  - CEREBRAL HAEMORRHAGE [None]
  - DRUG INTERACTION [None]
